FAERS Safety Report 7003384-3 (Version None)
Quarter: 2010Q3

REPORT INFORMATION
  Report Type: 
  Country: None (occurrence: None)
  Receive Date: 20100920
  Receipt Date: 20100824
  Transmission Date: 20110219
  Serious: No
  Sender: FDA-Public Use
  Company Number: US-PFIZER INC-2010107346

PATIENT
  Sex: Female
  Weight: 73 kg

DRUGS (2)
  1. AROMASIN [Suspect]
     Indication: BREAST CANCER METASTATIC
     Dosage: 25 MG, DAILY
     Route: 048
     Dates: start: 20100301, end: 20100824
  2. WARFARIN [Concomitant]
     Indication: THROMBOSIS
     Dosage: UNK

REACTIONS (4)
  - BREAST CANCER [None]
  - DISEASE PROGRESSION [None]
  - DRUG INEFFECTIVE [None]
  - INSOMNIA [None]
